FAERS Safety Report 7028583-6 (Version None)
Quarter: 2010Q4

REPORT INFORMATION
  Report Type: 
  Country: None (occurrence: None)
  Receive Date: 20101005
  Receipt Date: 20100920
  Transmission Date: 20110411
  Serious: Yes (Other)
  Sender: FDA-Public Use
  Company Number: GB-AMGEN-QUU442646

PATIENT
  Sex: Female

DRUGS (8)
  1. ENBREL [Suspect]
     Indication: PRODUCT USED FOR UNKNOWN INDICATION
     Dosage: UNKNOWN
     Dates: start: 20100601
  2. PREDNISOLONE [Concomitant]
     Dosage: UNKNOWN
  3. PARACETAMOL [Concomitant]
     Dosage: UNKNOWN
  4. CALCIUM [Concomitant]
     Dosage: UNKNOWN
  5. ARCOXIA [Concomitant]
     Dosage: UNKNOWN
  6. FOLIC ACID [Concomitant]
     Dosage: UNKNOWN
  7. METHOTREXATE [Concomitant]
     Dosage: UNKNOWN
  8. ALENDRONIC ACID [Concomitant]
     Dosage: UNKNOWN

REACTIONS (5)
  - CONDITION AGGRAVATED [None]
  - CONSTIPATION [None]
  - MALAISE [None]
  - PAIN [None]
  - VISUAL IMPAIRMENT [None]
